FAERS Safety Report 12921032 (Version 1)
Quarter: 2016Q4

REPORT INFORMATION
  Report Type: Spontaneous
  Country: US (occurrence: US)
  Receive Date: 20161105
  Receipt Date: 20161105
  Transmission Date: 20170207
  Serious: Yes (Hospitalization)
  Sender: FDA-Public Use
  Company Number: None

PATIENT
  Age: 19 Year
  Sex: Male
  Weight: 113.7 kg

DRUGS (5)
  1. CYTARABINE. [Suspect]
     Active Substance: CYTARABINE
     Dates: end: 20161017
  2. VINCRISTINE SULFATE. [Suspect]
     Active Substance: VINCRISTINE SULFATE
     Dates: end: 20161017
  3. MITOXANTRONE HYDROCHLORIDE. [Suspect]
     Active Substance: MITOXANTRONE HYDROCHLORIDE
     Dates: end: 20161004
  4. ONCASPAR [Suspect]
     Active Substance: PEGASPARGASE
     Dates: end: 20161019
  5. DEXAMETHASONE. [Suspect]
     Active Substance: DEXAMETHASONE
     Dates: end: 20161021

REACTIONS (22)
  - Ecchymosis [None]
  - Bacillus test positive [None]
  - Rash [None]
  - Ecthyma [None]
  - Oral candidiasis [None]
  - Blood lactic acid increased [None]
  - Staphylococcus test positive [None]
  - Cellulitis [None]
  - Lip disorder [None]
  - Septic shock [None]
  - Transfusion related complication [None]
  - Candida infection [None]
  - Flank pain [None]
  - Escherichia infection [None]
  - Oral disorder [None]
  - Thrombocytopenia [None]
  - Abdominal pain [None]
  - Nausea [None]
  - Pyrexia [None]
  - Hypotension [None]
  - Neutropenia [None]
  - Herpes simplex test positive [None]

NARRATIVE: CASE EVENT DATE: 20161022
